FAERS Safety Report 21200358 (Version 4)
Quarter: 2022Q4

REPORT INFORMATION
  Report Type: Spontaneous
  Country: IT (occurrence: IT)
  Receive Date: 20220811
  Receipt Date: 20221014
  Transmission Date: 20230113
  Serious: Yes (Death, Other)
  Sender: FDA-Public Use
  Company Number: IT-Stemline Therapeutics, Inc.-2022ST000066

PATIENT
  Age: 52 Year
  Sex: Female

DRUGS (2)
  1. ELZONRIS [Suspect]
     Active Substance: TAGRAXOFUSP-ERZS
     Indication: Blastic plasmacytoid dendritic cell neoplasia
     Dosage: CYCLE 1, 5 ADMINISTRATIONS
     Route: 042
     Dates: start: 20220622, end: 20220626
  2. ELZONRIS [Suspect]
     Active Substance: TAGRAXOFUSP-ERZS
     Dosage: CYCLE 2, 4 ADMINISTRATIONS
     Route: 042
     Dates: start: 20220725, end: 20220728

REACTIONS (3)
  - Acute respiratory failure [Fatal]
  - Alveolitis [Fatal]
  - Capillary leak syndrome [Unknown]

NARRATIVE: CASE EVENT DATE: 20220601
